FAERS Safety Report 10594216 (Version 2)
Quarter: 2015Q1

REPORT INFORMATION
  Report Type: Spontaneous
  Country: US (occurrence: US)
  Receive Date: 20141119
  Receipt Date: 20150221
  Transmission Date: 20150720
  Serious: No
  Sender: FDA-Public Use
  Company Number: US-SA-2014SA154594

PATIENT

DRUGS (1)
  1. AUVI-Q [Suspect]
     Active Substance: EPINEPHRINE
     Route: 065

REACTIONS (2)
  - Accidental exposure to product [Unknown]
  - Headache [Recovered/Resolved]
